FAERS Safety Report 17747165 (Version 2)
Quarter: 2020Q2

REPORT INFORMATION
  Report Type: Spontaneous
  Country: IE (occurrence: IE)
  Receive Date: 20200505
  Receipt Date: 20200518
  Transmission Date: 20200714
  Serious: Yes (Hospitalization, Other)
  Sender: FDA-Public Use
  Company Number: IE-MYLANLABS-2020M1044827

PATIENT
  Sex: Male
  Weight: 120 kg

DRUGS (4)
  1. CLOZARIL [Suspect]
     Active Substance: CLOZAPINE
     Indication: SCHIZOPHRENIA
     Dosage: 150 MILLIGRAM, AM
     Route: 048
     Dates: start: 20190118
  2. HYOSCINE HYDROBROMIDE [Concomitant]
     Active Substance: SCOPOLAMINE HYDROBROMIDE
     Indication: SALIVARY HYPERSECRETION
     Dosage: 300 MICROGRAM, TID
     Route: 048
     Dates: start: 201902
  3. CLOZARIL [Suspect]
     Active Substance: CLOZAPINE
     Dosage: 200 MILLIGRAM, PM
     Route: 048
     Dates: start: 20190118
  4. EPHEDRINE. [Concomitant]
     Active Substance: EPHEDRINE
     Indication: URINARY INCONTINENCE
     Dosage: 15 MILLIGRAM, TID
     Route: 048
     Dates: start: 201902

REACTIONS (2)
  - COVID-19 pneumonia [Not Recovered/Not Resolved]
  - Faecaloma [Unknown]
